FAERS Safety Report 5122103-9 (Version None)
Quarter: 2006Q4

REPORT INFORMATION
  Report Type: 
  Country: None (occurrence: None)
  Receive Date: 20061004
  Receipt Date: 20061004
  Transmission Date: 20070319
  Serious: Yes (Life-Threatening)
  Sender: FDA-Public Use
  Company Number: None

PATIENT
  Sex: Female
  Weight: 106.5953 kg

DRUGS (2)
  1. NUVARING [Suspect]
     Indication: HOT FLUSH
     Dosage: I RING Q MONTH VAG
     Route: 067
     Dates: start: 20060109, end: 20060913
  2. NUVARING [Suspect]
     Indication: MENOPAUSAL SYMPTOMS
     Dosage: I RING Q MONTH VAG
     Route: 067
     Dates: start: 20060109, end: 20060913

REACTIONS (1)
  - DEEP VEIN THROMBOSIS [None]
